FAERS Safety Report 5224846-5 (Version None)
Quarter: 2007Q1

REPORT INFORMATION
  Report Type: 
  Country: None (occurrence: None)
  Receive Date: 20070126
  Receipt Date: 20070116
  Transmission Date: 20070707
  Serious: Yes (Hospitalization)
  Sender: FDA-Public Use
  Company Number: B0455018A

PATIENT
  Age: 20 Year
  Sex: Female

DRUGS (3)
  1. WELLBUTRIN [Suspect]
  2. VENLAFAXINE HCL [Suspect]
  3. DEXEDRINE [Suspect]

REACTIONS (12)
  - AGITATION [None]
  - CLONUS [None]
  - CONFUSIONAL STATE [None]
  - CONVULSION [None]
  - DRUG TOXICITY [None]
  - HYPERREFLEXIA [None]
  - HYPERTHERMIA [None]
  - MUSCLE RIGIDITY [None]
  - OVERDOSE [None]
  - RESPIRATORY DISORDER [None]
  - SEROTONIN SYNDROME [None]
  - TACHYCARDIA [None]
